FAERS Safety Report 20513579 (Version 1)
Quarter: 2022Q1

REPORT INFORMATION
  Report Type: Spontaneous
  Country: US (occurrence: US)
  Receive Date: 20220224
  Receipt Date: 20220224
  Transmission Date: 20220423
  Serious: No
  Sender: FDA-Public Use
  Company Number: US-AMNEAL PHARMACEUTICALS-2021-AMRX-05066

PATIENT
  Sex: Female

DRUGS (1)
  1. RYTARY [Suspect]
     Active Substance: CARBIDOPA\LEVODOPA
     Indication: Parkinson^s disease
     Dosage: 13 CAPSULES, DAILY (4 CAPS AT 6AM AND 3 CAPS AT 11AM, 4PM, 9PM)
     Route: 048

REACTIONS (6)
  - Therapeutic response shortened [Unknown]
  - Visual impairment [Unknown]
  - Drug intolerance [Unknown]
  - Tremor [Unknown]
  - Dyskinesia [Unknown]
  - Insomnia [Unknown]
